FAERS Safety Report 6941072-X (Version None)
Quarter: 2010Q3

REPORT INFORMATION
  Report Type: 
  Country: None (occurrence: None)
  Receive Date: 20100825
  Receipt Date: 20100820
  Transmission Date: 20110219
  Serious: Yes (Life-Threatening, Hospitalization)
  Sender: FDA-Public Use
  Company Number: FR-BRISTOL-MYERS SQUIBB COMPANY-15249279

PATIENT
  Age: 43 Year
  Sex: Male

DRUGS (3)
  1. REYATAZ [Suspect]
     Indication: HIV INFECTION
     Route: 048
     Dates: start: 20070101
  2. NORVIR [Suspect]
     Indication: HIV INFECTION
     Route: 048
     Dates: start: 20010101
  3. KIVEXA [Suspect]
     Indication: HIV INFECTION
     Dosage: 1DF=600MG/300MG, 1 FILM-COATED TABLET.
     Route: 048
     Dates: start: 20080101

REACTIONS (1)
  - MYOCARDIAL INFARCTION [None]
